FAERS Safety Report 8303699-2 (Version None)
Quarter: 2012Q2

REPORT INFORMATION
  Report Type: 
  Country: None (occurrence: None)
  Receive Date: 20120418
  Receipt Date: 20111213
  Transmission Date: 20120825
  Serious: Yes (Death)
  Sender: FDA-Public Use
  Company Number: 2011SE75631

PATIENT
  Sex: Male

DRUGS (10)
  1. ROCEPHIN [Suspect]
     Dosage: , UNSPECIFIED UNIT, , ?, UNSPECIFIED INTERVAL
     Route: 042
     Dates: start: 20110529, end: 20110608
  2. FLAGYL [Suspect]
     Dosage: , UNSPECIFIED UNIT, , ?, UNSPECIFIED INTERVAL
     Dates: start: 20110529, end: 20110608
  3. NEXIUM [Suspect]
     Dosage: , UNSPECIFIED UNIT, , ?, UNSPECIFIED INTERVAL
     Route: 048
     Dates: start: 20110530, end: 20110610
  4. FOSCARNET SODIUM [Suspect]
     Dosage: , UNSPECIFIED UNIT, , ?, UNSPECIFIED INTERVAL
     Dates: start: 20110606, end: 20110608
  5. ROCEPHIN [Suspect]
     Dosage: , UNSPECIFIED UNIT, , ?, UNSPECIFIED INTERVAL
     Route: 042
     Dates: start: 20110610, end: 20110611
  6. SOLU-MEDROL [Suspect]
     Dosage: , UNSPECIFIED UNIT, , ?, UNSPECIFIED INTERVAL
     Route: 042
     Dates: start: 20110530, end: 20110608
  7. NOZINAN: / LEVOMEPROMAZINE [Suspect]
     Dosage: , UNSPECIFIED UNIT, , ?, UNSPECIFIED INTERVAL
     Dates: start: 20110607, end: 20110610
  8. FOSCARNET SODIUM [Suspect]
     Dosage: , UNSPECIFIED UNIT, ,?, UNSPECIFIED INTERVAL
     Dates: start: 20110601, end: 20110602
  9. FOSCARNET SODIUM [Suspect]
     Dosage: , UNSPECIFIED UNIT, , ?, UNSPECIFIED INTERVAL
     Dates: start: 20110604, end: 20110604
  10. FOSCARNET SODIUM [Suspect]
     Dosage: , UNSPECIFIED UNIT, , ?, UNSPECIFIED INTERVAL
     Dates: start: 20110611, end: 20110611

REACTIONS (10)
  - HAEMODYNAMIC INSTABILITY [None]
  - CARDIO-RESPIRATORY ARREST [None]
  - TOXIC SKIN ERUPTION [None]
  - TOXIC EPIDERMAL NECROLYSIS [None]
  - ESCHERICHIA SEPSIS [None]
  - HAEMOLYSIS [None]
  - RENAL FAILURE ACUTE [None]
  - VENTRICULAR FIBRILLATION [None]
  - PANCYTOPENIA [None]
  - HAEMODIALYSIS [None]
